FAERS Safety Report 21054517 (Version 6)
Quarter: 2024Q2

REPORT INFORMATION
  Report Type: Spontaneous
  Country: US (occurrence: US)
  Receive Date: 20220707
  Receipt Date: 20240530
  Transmission Date: 20240716
  Serious: Yes (Other)
  Sender: FDA-Public Use
  Company Number: US-PFIZER INC-PV202200014409

PATIENT
  Age: 68 Year
  Sex: Female

DRUGS (5)
  1. IBRANCE [Suspect]
     Active Substance: PALBOCICLIB
     Indication: Aromatase inhibition therapy
     Dosage: 125 MG
  2. IBRANCE [Suspect]
     Active Substance: PALBOCICLIB
     Indication: Disease progression
     Dosage: 75 MG
     Dates: start: 202110
  3. IBRANCE [Suspect]
     Active Substance: PALBOCICLIB
     Indication: Hormone receptor positive HER2 negative breast cancer
     Dosage: 100 MG
  4. IBRANCE [Suspect]
     Active Substance: PALBOCICLIB
     Dosage: 125 MG
     Dates: start: 2022
  5. FEMARA [Concomitant]
     Active Substance: LETROZOLE
     Dosage: UNK

REACTIONS (11)
  - Neutropenia [Unknown]
  - Hip fracture [Unknown]
  - Product use issue [Unknown]
  - Fatigue [Unknown]
  - Mutism [Unknown]
  - Illness [Unknown]
  - Urinary tract infection viral [Unknown]
  - Weight decreased [Recovering/Resolving]
  - White blood cell count decreased [Unknown]
  - Fall [Unknown]
  - Discouragement [Unknown]
